FAERS Safety Report 5148950-5 (Version None)
Quarter: 2006Q4

REPORT INFORMATION
  Report Type: 
  Country: None (occurrence: None)
  Receive Date: 20061108
  Receipt Date: 20061025
  Transmission Date: 20070319
  Serious: Yes (Hospitalization)
  Sender: FDA-Public Use
  Company Number: 2006PV023889

PATIENT
  Age: 55 Year
  Sex: Female
  Weight: 102.0593 kg

DRUGS (4)
  1. SYMLIN [Suspect]
     Indication: DIABETES MELLITUS NON-INSULIN-DEPENDENT
     Dosage: 120 MCG;TID;SC; 60 MCG;TID;SC
     Route: 058
     Dates: start: 20060101, end: 20060101
  2. SYMLIN [Suspect]
     Indication: DIABETES MELLITUS NON-INSULIN-DEPENDENT
     Dosage: 120 MCG;TID;SC; 60 MCG;TID;SC
     Route: 058
     Dates: start: 20060101
  3. HUMALOG [Concomitant]
  4. LANTUS [Concomitant]

REACTIONS (8)
  - CARDIAC FAILURE CONGESTIVE [None]
  - CHEST PAIN [None]
  - CONDITION AGGRAVATED [None]
  - DIASTOLIC DYSFUNCTION [None]
  - DYSPNOEA EXERTIONAL [None]
  - DYSSTASIA [None]
  - HYPERHIDROSIS [None]
  - WEIGHT INCREASED [None]
